FAERS Safety Report 14952441 (Version 1)
Quarter: 2018Q2

REPORT INFORMATION
  Report Type: Spontaneous
  Country: JP (occurrence: JP)
  Receive Date: 20180530
  Receipt Date: 20180530
  Transmission Date: 20180711
  Serious: Yes (Other)
  Sender: FDA-Public Use
  Company Number: JP-AMGEN-JPNSP2018072608

PATIENT
  Sex: Male

DRUGS (1)
  1. ENBREL [Suspect]
     Active Substance: ETANERCEPT
     Indication: RHEUMATOID ARTHRITIS
     Dosage: UNK
     Route: 065
     Dates: start: 2007

REACTIONS (4)
  - Dry skin [Recovered/Resolved]
  - Lung neoplasm malignant [Unknown]
  - Drug ineffective [Unknown]
  - Tinea pedis [Recovered/Resolved]

NARRATIVE: CASE EVENT DATE: 2013
